FAERS Safety Report 10424794 (Version 1)
Quarter: 2014Q3

REPORT INFORMATION
  Report Type: Spontaneous
  Country: ZA (occurrence: ZA)
  Receive Date: 20140902
  Receipt Date: 20140902
  Transmission Date: 20150326
  Serious: Yes (Death)
  Sender: FDA-Public Use
  Company Number: ZA-PFIZER INC-2014241749

PATIENT
  Sex: Male

DRUGS (6)
  1. LANOXIN [Concomitant]
     Active Substance: DIGOXIN
     Indication: CARDIAC DISCOMFORT
     Route: 048
  2. WARFARIN [Concomitant]
     Active Substance: WARFARIN
     Indication: ANTICOAGULANT THERAPY
     Route: 048
  3. INSPRA [Suspect]
     Active Substance: EPLERENONE
     Indication: POLYURIA
     Route: 048
  4. PLASMOQUINE [Concomitant]
     Indication: INFECTION PROTOZOAL
     Route: 048
  5. PANAFCORT [Concomitant]
     Active Substance: PREDNISONE
     Route: 048
  6. PURESIS [Concomitant]
     Active Substance: FUROSEMIDE
     Indication: POLYURIA
     Route: 048

REACTIONS (1)
  - Death [Fatal]

NARRATIVE: CASE EVENT DATE: 20140703
